FAERS Safety Report 6769755-5 (Version None)
Quarter: 2010Q2

REPORT INFORMATION
  Report Type: 
  Country: None (occurrence: None)
  Receive Date: 20100615
  Receipt Date: 20100608
  Transmission Date: 20101027
  Serious: Yes (Hospitalization)
  Sender: FDA-Public Use
  Company Number: NO-B.I. PHARMACEUTICALS,INC./RIDGEFIELD-2010-SW-00173NO

PATIENT
  Sex: Female

DRUGS (6)
  1. PERSANTIN [Suspect]
     Indication: PROPHYLAXIS
     Dosage: 400 MG
     Route: 048
     Dates: start: 20090701, end: 20100501
  2. SELO-ZOK [Concomitant]
     Dosage: 25 MG
     Route: 048
  3. CETIRIZINE HCL [Concomitant]
     Dosage: 10 MG
     Route: 048
  4. ALBYL-E [Concomitant]
     Dosage: 75 MG
  5. FOLSYRE NAF [Concomitant]
     Dosage: 1 ANZ
     Route: 048
  6. SIMVASTATIN [Concomitant]
     Dosage: 40 MG

REACTIONS (2)
  - DIARRHOEA [None]
  - DYSPHAGIA [None]
